FAERS Safety Report 14707147 (Version 1)
Quarter: 2018Q2

REPORT INFORMATION
  Report Type: Spontaneous
  Country: US (occurrence: US)
  Receive Date: 20180403
  Receipt Date: 20180403
  Transmission Date: 20180711
  Serious: No
  Sender: FDA-Public Use
  Company Number: US-009507513-1804USA000503

PATIENT
  Age: 79 Year
  Sex: Female

DRUGS (5)
  1. HYDROXYZINE [Concomitant]
     Active Substance: HYDROXYZINE HYDROCHLORIDE
  2. BELSOMRA [Suspect]
     Active Substance: SUVOREXANT
     Indication: NON-HODGKIN^S LYMPHOMA
     Dosage: 10 MG, QD
     Route: 048
     Dates: start: 20180327
  3. IMBRUVICA [Concomitant]
     Active Substance: IBRUTINIB
  4. CLOTHIAPINE [Concomitant]
     Active Substance: CLOTHIAPINE
  5. CENTRUM (MINERALS (UNSPECIFIED) (+) VITAMINS (UNSPECIFIED)) [Concomitant]

REACTIONS (2)
  - Product use in unapproved indication [Unknown]
  - Initial insomnia [Not Recovered/Not Resolved]

NARRATIVE: CASE EVENT DATE: 20180327
